FAERS Safety Report 9060883 (Version 14)
Quarter: 2014Q2

REPORT INFORMATION
  Report Type: Report from Study
  Country: DE (occurrence: DE)
  Receive Date: 20130204
  Receipt Date: 20140623
  Transmission Date: 20141212
  Serious: Yes (Death, Life-Threatening, Hospitalization, Other)
  Sender: FDA-Public Use
  Company Number: PHHY2013DE009978

PATIENT
  Sex: Male
  Weight: 44 kg

DRUGS (24)
  1. AFINITOR [Suspect]
     Indication: PANCREATIC NEUROENDOCRINE TUMOUR
     Dosage: 10 MG, QD
     Route: 048
     Dates: start: 20120801, end: 20120929
  2. AFINITOR [Suspect]
     Dosage: 5 MG, QD
     Route: 048
     Dates: start: 20121004, end: 20121030
  3. PANKREON [Concomitant]
     Indication: PANCREATIC INSUFFICIENCY
     Dosage: 3 DF, BID
     Dates: start: 2009
  4. FUROSEMIDE [Concomitant]
     Indication: DIURETIC THERAPY
     Dosage: 100 MG, QD
     Dates: start: 201201
  5. FUROSEMIDE [Concomitant]
     Indication: ASCITES
  6. NOVALGIN [Concomitant]
     Indication: PAIN
     Dates: start: 2012
  7. NOVALGIN [Concomitant]
     Dosage: 25 MG, TID
  8. NOVALGIN [Concomitant]
     Dates: start: 2012
  9. LEFAX [Concomitant]
     Indication: ABDOMINAL DISTENSION
  10. FERRO SANOL DROPS [Concomitant]
     Indication: IRON DEFICIENCY ANAEMIA
     Dosage: 40 MG, QD
     Route: 048
     Dates: start: 201111
  11. ALDACTONE 50 [Concomitant]
     Indication: ASCITES
     Dosage: 2 DF, QW
     Route: 042
     Dates: start: 201201
  12. SPIRO COMP [Concomitant]
     Indication: ASCITES
     Dosage: 2 DF, 2XDAILY
     Dates: start: 201207
  13. TARGIN [Concomitant]
     Indication: PAIN
     Dosage: 7.5 MG (5 MG + 2.5 MG), BID
     Dates: start: 201206
  14. MCP [Concomitant]
     Indication: COLITIS
     Dates: start: 201201
  15. SALOFALK [Concomitant]
     Indication: COLITIS
     Dosage: 500 MG, TID
     Dates: start: 20111123
  16. MEBEVERINE [Concomitant]
     Indication: COLITIS
     Dosage: 1 DF, DAILY
     Dates: start: 20111123
  17. LANSOPRAZOLE [Concomitant]
     Indication: COLITIS
     Dosage: 15 MG, UNK
     Dates: start: 20111123
  18. FRESUBIN [Concomitant]
     Indication: CACHEXIA
     Dosage: 200 ML, PRN
     Dates: start: 201108
  19. FRESUBIN [Concomitant]
     Indication: WEIGHT DECREASED
  20. FRESUBIN [Concomitant]
     Indication: GENERAL PHYSICAL HEALTH DETERIORATION
  21. KALINOR [Concomitant]
     Indication: HYPOKALAEMIA
     Dates: start: 201209
  22. HEPA MERZ [Concomitant]
     Indication: HEPATIC STEATOSIS
     Dates: start: 201203
  23. GALVUS [Concomitant]
     Indication: TYPE 2 DIABETES MELLITUS
     Dosage: 50 MG, UNK
     Dates: start: 201104
  24. DIFLUCAN [Concomitant]
     Indication: ORAL CANDIDIASIS
     Dates: start: 20120910

REACTIONS (11)
  - Malignant neoplasm progression [Fatal]
  - Quality of life decreased [Recovering/Resolving]
  - Sideroblastic anaemia [Unknown]
  - Haemoglobin decreased [Recovering/Resolving]
  - Mucosal inflammation [Recovering/Resolving]
  - Drug ineffective [Unknown]
  - Chills [Not Recovered/Not Resolved]
  - General physical health deterioration [Not Recovered/Not Resolved]
  - Body temperature increased [Not Recovered/Not Resolved]
  - Osteoporosis [Not Recovered/Not Resolved]
  - Oral candidiasis [Unknown]
